FAERS Safety Report 9287683 (Version 1)
Quarter: 2013Q2

REPORT INFORMATION
  Report Type: Report from Study
  Country: CA (occurrence: CA)
  Receive Date: 20130514
  Receipt Date: 20130514
  Transmission Date: 20140414
  Serious: Yes (Other)
  Sender: FDA-Public Use
  Company Number: CA-JNJFOC-20130503992

PATIENT
  Age: 74 Year
  Sex: Male
  Weight: 83.5 kg

DRUGS (3)
  1. REMICADE [Suspect]
     Indication: RHEUMATOID ARTHRITIS
     Route: 042
     Dates: start: 200006
  2. BISOPROLOL [Suspect]
     Indication: BLOOD PRESSURE
     Route: 065
     Dates: start: 2013
  3. NORVASC [Concomitant]
     Indication: BLOOD PRESSURE
     Route: 065

REACTIONS (2)
  - Atrial tachycardia [Recovered/Resolved]
  - Ventricular extrasystoles [Recovered/Resolved]
